FAERS Safety Report 20135222 (Version 1)
Quarter: 2021Q4

REPORT INFORMATION
  Report Type: Report from Study
  Country: US (occurrence: US)
  Receive Date: 20211201
  Receipt Date: 20211201
  Transmission Date: 20220304
  Serious: Yes (Other)
  Sender: FDA-Public Use
  Company Number: US-MYLANLABS-2021M1015617

PATIENT

DRUGS (6)
  1. IFOSFAMIDE [Suspect]
     Active Substance: IFOSFAMIDE
     Indication: Hodgkin^s disease
     Dosage: CYCLE 5G/M2 ON DAY 2 (SCHEDULED TO RECEIVE TWO 21-DAY CYCLES)
     Route: 042
  2. MESNA [Suspect]
     Active Substance: MESNA
     Indication: Hodgkin^s disease
     Dosage: UNK UNK, CYCLE, 5G/M2 ON DAY 2 (SCHEDULED TO RECEIVE TWO 21-DAY CYCLES)
     Route: 042
  3. CARBOPLATIN [Suspect]
     Active Substance: CARBOPLATIN
     Indication: Hodgkin^s disease
     Dosage: ON DAY 2 (CAPPED AT 800MG; SCHEDULED TO RECEIVE TWO 21-DAY CYCLE)
     Route: 042
  4. CARBOPLATIN [Suspect]
     Active Substance: CARBOPLATIN
     Dosage: CYCLE, AREA UNDER THE CURVE 5 ON DAY 2 IN ONE INTRAVENOUS INJECTION
     Route: 042
  5. ETOPOSIDE [Suspect]
     Active Substance: ETOPOSIDE
     Indication: Hodgkin^s disease
     Dosage: 100 MILLIGRAM/SQ. METER, CYCLE 100MG/M2/DAY ON DAYS 1 TO 3?..
     Route: 042
  6. BRENTUXIMAB VEDOTIN [Suspect]
     Active Substance: BRENTUXIMAB VEDOTIN
     Indication: Hodgkin^s disease
     Dosage: SCHEDULED TO RECEIVE ON DAY 1 AND 8 FOR TWO 21-DAY CYCLE (CAPPED AT 150MG)
     Route: 042

REACTIONS (1)
  - Drug ineffective [Unknown]
